APPROVED DRUG PRODUCT: NALTREXONE HYDROCHLORIDE
Active Ingredient: NALTREXONE HYDROCHLORIDE
Strength: 50MG
Dosage Form/Route: TABLET;ORAL
Application: A074918 | Product #001 | TE Code: AB
Applicant: BARR LABORATORIES INC
Approved: May 8, 1998 | RLD: No | RS: No | Type: RX